FAERS Safety Report 5642648-2 (Version None)
Quarter: 2008Q1

REPORT INFORMATION
  Report Type: 
  Country: None (occurrence: None)
  Receive Date: 20080226
  Receipt Date: 20080215
  Transmission Date: 20080703
  Serious: Yes (Life-Threatening, Hospitalization)
  Sender: FDA-Public Use
  Company Number: CFNTY-197

PATIENT
  Age: 44 Year
  Sex: Male

DRUGS (3)
  1. CEFDITOREN PIVOXIL [Suspect]
     Dosage: 300 MG, PO
     Route: 048
     Dates: start: 20080109, end: 20080117
  2. BIOFERMIN-R (ANTIBIOTIC RESISTANT LACTIC ACID BACTERIAE) [Concomitant]
  3. S. TAC EVE (IBUPROFEN-BASED COLD OTC MEDICINE) [Concomitant]

REACTIONS (5)
  - CHROMATURIA [None]
  - DYSPNOEA [None]
  - OEDEMA [None]
  - RENAL FAILURE ACUTE [None]
  - RHABDOMYOLYSIS [None]
